FAERS Safety Report 10069903 (Version 2)
Quarter: 2014Q3

REPORT INFORMATION
  Report Type: Spontaneous
  Country: AU (occurrence: None)
  Receive Date: 20140408
  Receipt Date: 20140722
  Transmission Date: 20150326
  Serious: Yes (Life-Threatening, Other)
  Sender: FDA-Public Use
  Company Number: AUR-APL-2014-04175

PATIENT
  Age: 25 Year
  Sex: Male
  Weight: 109 kg

DRUGS (6)
  1. AURO-QUETIAPINE 200 [Suspect]
     Active Substance: QUETIAPINE
     Indication: PRODUCT USED FOR UNKNOWN INDICATION
  2. NITRAZEPAM (NITRAZEPAM) [Suspect]
     Active Substance: NITRAZEPAM
     Indication: PRODUCT USED FOR UNKNOWN INDICATION
     Dates: start: 20120223
  3. OZIN 2.5 TABLETS (OLANZAPINE) TABLET, 2.5MG [Suspect]
     Active Substance: OLANZAPINE
  4. DIAZEPAM (DIAZEPAM) [Suspect]
     Active Substance: DIAZEPAM
     Indication: PRODUCT USED FOR UNKNOWN INDICATION
  5. CLOZARIL [Suspect]
     Active Substance: CLOZAPINE
     Indication: PRODUCT USED FOR UNKNOWN INDICATION
     Dates: start: 20040810, end: 20120312
  6. MULTIVITAMIN /00097801/ (ASCORBIC ACID, CALCIUM, PANTOTHENATE, ERGOCALCIFEROL, NICOTINAMIDE, PYRIDOXINE HYDROCHLORIDE, RETINOL, RIBOFLAVIN, THIAMINE HYDROCHLORIDE [Concomitant]

REACTIONS (8)
  - Myocarditis [None]
  - Body temperature increased [None]
  - Troponin increased [None]
  - Sinus tachycardia [None]
  - Nausea [None]
  - Tremor [None]
  - C-reactive protein increased [None]
  - Suicide attempt [None]

NARRATIVE: CASE EVENT DATE: 20070821
